FAERS Safety Report 12561256 (Version 2)
Quarter: 2016Q3

REPORT INFORMATION
  Report Type: Spontaneous
  Country: US (occurrence: US)
  Receive Date: 20160715
  Receipt Date: 20160720
  Transmission Date: 20161109
  Serious: Yes (Other)
  Sender: FDA-Public Use
  Company Number: US-PFIZER INC-2016341527

PATIENT
  Age: 51 Year
  Sex: Female
  Weight: 66 kg

DRUGS (5)
  1. DIFLUCAN [Concomitant]
     Active Substance: FLUCONAZOLE
     Indication: CONGENITAL ECTODERMAL DYSPLASIA
     Dosage: 100 MG, AS NEEDED
  2. RITALIN [Concomitant]
     Active Substance: METHYLPHENIDATE HYDROCHLORIDE
     Indication: ATTENTION DEFICIT/HYPERACTIVITY DISORDER
     Dosage: 20 MG, 3X/DAY
  3. ADVIL [Suspect]
     Active Substance: IBUPROFEN
     Indication: MUSCULOSKELETAL PAIN
     Dosage: UNK
     Route: 048
  4. ERYTHROMYCIN. [Concomitant]
     Active Substance: ERYTHROMYCIN
     Indication: EYE LUBRICATION THERAPY
     Dosage: UNK
  5. PRED FORTE [Concomitant]
     Active Substance: PREDNISOLONE ACETATE
     Indication: BLINDNESS
     Dosage: UNK

REACTIONS (16)
  - Product colour issue [Unknown]
  - Oral pain [Not Recovered/Not Resolved]
  - Off label use [Unknown]
  - Chemical burn of gastrointestinal tract [Not Recovered/Not Resolved]
  - Hypoaesthesia oral [Not Recovered/Not Resolved]
  - Tongue exfoliation [Unknown]
  - Product taste abnormal [Unknown]
  - Swollen tongue [Not Recovered/Not Resolved]
  - Glossodynia [Unknown]
  - Tongue blistering [Unknown]
  - Wrong technique in product usage process [Unknown]
  - Salivary hypersecretion [Not Recovered/Not Resolved]
  - Poor quality drug administered [Unknown]
  - Swelling face [Not Recovered/Not Resolved]
  - Paraesthesia [Not Recovered/Not Resolved]
  - Throat irritation [Unknown]

NARRATIVE: CASE EVENT DATE: 201607
